FAERS Safety Report 15605822 (Version 1)
Quarter: 2018Q4

REPORT INFORMATION
  Report Type: Spontaneous
  Country: US (occurrence: US)
  Receive Date: 20181106
  Receipt Date: 20181106
  Transmission Date: 20190205
  Serious: Yes (Hospitalization)
  Sender: FDA-Public Use
  Company Number: None

PATIENT
  Age: 70 Year
  Sex: Male
  Weight: 118.84 kg

DRUGS (1)
  1. KETAMINE [Suspect]
     Active Substance: KETAMINE
     Indication: SURGERY
     Route: 042
     Dates: start: 20180828, end: 20180828

REACTIONS (1)
  - Hypotension [None]

NARRATIVE: CASE EVENT DATE: 20180828
